FAERS Safety Report 6458743-4 (Version None)
Quarter: 2009Q4

REPORT INFORMATION
  Report Type: 
  Country: None (occurrence: None)
  Receive Date: 20091127
  Receipt Date: 20091117
  Transmission Date: 20100525
  Serious: Yes (Other)
  Sender: FDA-Public Use
  Company Number: US-ROCHE-669494

PATIENT
  Sex: Female
  Weight: 51.3 kg

DRUGS (1)
  1. TAMIFLU [Suspect]
     Indication: INFLUENZA LIKE ILLNESS
     Dosage: AT 03 PM AND 09 PM
     Route: 048
     Dates: start: 20091116, end: 20091116

REACTIONS (2)
  - DELUSION [None]
  - DIZZINESS [None]
